FAERS Safety Report 13580881 (Version 1)
Quarter: 2017Q2

REPORT INFORMATION
  Report Type: Spontaneous
  Country: US (occurrence: US)
  Receive Date: 20170525
  Receipt Date: 20170525
  Transmission Date: 20170830
  Serious: Yes (Life-Threatening)
  Sender: FDA-Public Use
  Company Number: None

PATIENT
  Age: 61 Year
  Sex: Male
  Weight: 95.34 kg

DRUGS (11)
  1. MAGNESIUM [Concomitant]
     Active Substance: MAGNESIUM
  2. NECK STRCHER [Concomitant]
  3. VIT-D [Concomitant]
  4. NEBULIZER [Concomitant]
     Active Substance: DEVICE
  5. ROPINIROLE HCL 2MG, 2 MG EJIANG HUAHAI PHARMACEUTICAL CO. , [Suspect]
     Active Substance: ROPINIROLE HYDROCHLORIDE
     Indication: RESTLESS LEGS SYNDROME
     Route: 048
     Dates: start: 20150105, end: 20170522
  6. ELECTRIC TENS [Concomitant]
  7. VIT-B12 [Concomitant]
  8. CALCIUM [Concomitant]
     Active Substance: CALCIUM
  9. CPAP MACHINE [Concomitant]
  10. HBP MONITOR [Concomitant]
  11. OXYGEN MONITOR [Concomitant]

REACTIONS (8)
  - Pain [None]
  - Muscle spasms [None]
  - Dyspnoea [None]
  - Dizziness [None]
  - Peripheral swelling [None]
  - Vomiting [None]
  - Mood altered [None]
  - Headache [None]

NARRATIVE: CASE EVENT DATE: 20170405
